FAERS Safety Report 9010736 (Version 2)
Quarter: 2013Q1

REPORT INFORMATION
  Report Type: Spontaneous
  Country: JP (occurrence: JP)
  Receive Date: 20130111
  Receipt Date: 20130125
  Transmission Date: 20140127
  Serious: Yes (Life-Threatening, Other)
  Sender: FDA-Public Use
  Company Number: PHHY2013JP002233

PATIENT
  Age: 50 Year
  Sex: Female

DRUGS (7)
  1. NEORAL [Suspect]
     Indication: RENAL TRANSPLANT
     Route: 048
  2. NEORAL [Suspect]
     Route: 048
  3. CELLCEPT [Suspect]
     Indication: RENAL TRANSPLANT
     Route: 048
  4. SIMULECT [Concomitant]
     Indication: RENAL TRANSPLANT
     Dosage: 20 MG, UNK
     Route: 042
  5. PREDNISOLONE [Concomitant]
     Indication: RENAL TRANSPLANT
     Dosage: 5 MG, UNK
  6. PLASMAPHERESIS [Concomitant]
     Indication: TRANSPLANT REJECTION
  7. IMMUNOGLOBULINS [Concomitant]
     Indication: TRANSPLANT REJECTION

REACTIONS (5)
  - Progressive multifocal leukoencephalopathy [Recovering/Resolving]
  - JC virus infection [Recovering/Resolving]
  - Hypoaesthesia [Recovering/Resolving]
  - Muscular weakness [Recovering/Resolving]
  - Blood creatinine increased [Recovered/Resolved]
